FAERS Safety Report 6079334-3 (Version None)
Quarter: 2009Q1

REPORT INFORMATION
  Report Type: 
  Country: None (occurrence: None)
  Receive Date: 20090216
  Receipt Date: 20090210
  Transmission Date: 20090719
  Serious: Yes (Hospitalization)
  Sender: FDA-Public Use
  Company Number: PHHO2009DE00729

PATIENT
  Sex: Female
  Weight: 110 kg

DRUGS (3)
  1. ZOLEDRONIC ACID [Suspect]
     Indication: METASTASES TO BONE
     Dosage: 4 MG, UNK
     Route: 042
     Dates: start: 20071115
  2. CALCIUM+VIT D (NCH) [Suspect]
     Indication: PROPHYLAXIS
     Dosage: 500
     Dates: start: 20071115, end: 20081209
  3. FEMARA [Concomitant]
     Indication: OOPHORECTOMY
     Dosage: UNK
     Dates: start: 20071115

REACTIONS (2)
  - BACK PAIN [None]
  - NEPHROLITHIASIS [None]
